FAERS Safety Report 7352276-9 (Version None)
Quarter: 2011Q1

REPORT INFORMATION
  Report Type: 
  Country: None (occurrence: None)
  Receive Date: 20110315
  Receipt Date: 20110309
  Transmission Date: 20110831
  Serious: Yes (Hospitalization, Other)
  Sender: FDA-Public Use
  Company Number: FR-BRISTOL-MYERS SQUIBB COMPANY-15602758

PATIENT
  Age: 87 Year
  Sex: Male

DRUGS (2)
  1. LOVENOX [Suspect]
     Dosage: 7000 IU IN 2 DAYS SUBCUTANEOUSLY,INTRP 15DEC10,REINTR ON23DEC104000 IU/DAY
     Route: 058
     Dates: start: 20101001
  2. HYDREA [Suspect]
     Dosage: INTERRUPTED AND RESTARTED WITH REDUCED DOSE: 500 MG(EVERY OTHER DAY)STOPPED ON 15-DEC-2010.
     Route: 048
     Dates: start: 20101029

REACTIONS (3)
  - THROMBOCYTOPENIA [None]
  - HAEMATOMA [None]
  - ATRIOVENTRICULAR BLOCK COMPLETE [None]
